FAERS Safety Report 5072307-9 (Version None)
Quarter: 2006Q3

REPORT INFORMATION
  Report Type: 
  Country: None (occurrence: None)
  Receive Date: 20060801
  Receipt Date: 20060720
  Transmission Date: 20061208
  Serious: Yes (Hospitalization, Other)
  Sender: FDA-Public Use
  Company Number: 2006-01902

PATIENT
  Age: 45 Year
  Sex: Male

DRUGS (1)
  1. VELCADE [Suspect]
     Indication: MULTIPLE MYELOMA
     Dates: start: 20060601

REACTIONS (4)
  - AMYLOIDOSIS [None]
  - CONDITION AGGRAVATED [None]
  - MALIGNANT NEOPLASM PROGRESSION [None]
  - RESTRICTIVE CARDIOMYOPATHY [None]
